FAERS Safety Report 8921823 (Version 1)
Quarter: 2012Q4

REPORT INFORMATION
  Report Type: 
  Country: SE (occurrence: SE)
  Receive Date: 20121121
  Receipt Date: 20121121
  Transmission Date: 20130627
  Serious: Yes (Hospitalization)
  Sender: FDA-Public Use
  Company Number: SE-PFIZER INC-2012288320

PATIENT
  Age: 69 Year
  Sex: Male
  Weight: 81.3 kg

DRUGS (8)
  1. GENOTROPIN [Suspect]
     Indication: GROWTH HORMONE DEFICIENCY
     Dosage: 0.3 mg, 1x/day, 7 injections/week
     Route: 058
     Dates: start: 20010918
  2. HYDROCORTONE [Concomitant]
     Indication: ACTH DECREASED
     Dosage: UNK
     Dates: start: 20030716
  3. CORTISONE ACETATE [Concomitant]
     Indication: ACTH DECREASED
     Dosage: UNK
     Dates: start: 19660101
  4. LEVOTHYROXINE [Concomitant]
     Indication: TSH DECREASED
     Dosage: UNK
     Dates: start: 19660101
  5. LEVOTHYROXINE [Concomitant]
     Indication: PRIMARY HYPOTHYROIDISM
  6. TESTOSTERONE [Concomitant]
     Indication: LUTEINISING HORMONE DEFICIENCY
     Dosage: UNK
     Dates: start: 19660101
  7. TESTOSTERONE [Concomitant]
     Indication: FOLLICLE-STIMULATING HORMONE DEFICIENCY
  8. TESTOSTERONE [Concomitant]
     Indication: TESTICULAR HYPOGONADISM

REACTIONS (1)
  - Herpes zoster [Unknown]
